FAERS Safety Report 9646331 (Version 1)
Quarter: 2013Q4

REPORT INFORMATION
  Report Type: Spontaneous
  Country: IT (occurrence: None)
  Receive Date: 20131024
  Receipt Date: 20131024
  Transmission Date: 20140711
  Serious: Yes (Hospitalization)
  Sender: FDA-Public Use
  Company Number: AG-2013-015568

PATIENT
  Age: 84 Year
  Sex: Male
  Weight: 66 kg

DRUGS (8)
  1. LEUKERAN [Suspect]
     Indication: CHRONIC LYMPHOCYTIC LEUKAEMIA
     Dosage: 8 MILLIGRAM (8 MILLIGRAM , CYCLICAL), ORAL
     Route: 048
     Dates: start: 20130527, end: 20130603
  2. DELTACORTENE (PREDNISONE) [Concomitant]
  3. OMEPRAZOLE (OMEPRAZOLE) [Concomitant]
  4. FINASTERIDE (FINASTERIDE) [Concomitant]
  5. ALLOPURINOL (ALLOPURINAL) [Concomitant]
  6. LERCANIDIPINE HYDROCHLORIDE (LERCANIDIPINE) [Concomitant]
  7. GLIMEPIRIDE (GLIMEPIRIDE) [Concomitant]
  8. FENOFIBRATE (FENOFIBRATE) (FENOFIBRATE) [Concomitant]

REACTIONS (2)
  - Condition aggravated [None]
  - Idiopathic pulmonary fibrosis [None]
